FAERS Safety Report 8274770-9 (Version None)
Quarter: 2012Q2

REPORT INFORMATION
  Report Type: 
  Country: None (occurrence: None)
  Receive Date: 20120411
  Receipt Date: 20120406
  Transmission Date: 20120825
  Serious: Yes (Life-Threatening, Hospitalization, Other)
  Sender: FDA-Public Use
  Company Number: JP-BRISTOL-MYERS SQUIBB COMPANY-15639289

PATIENT
  Age: 62 Year
  Sex: Male

DRUGS (8)
  1. ORENCIA [Suspect]
     Indication: RHEUMATOID ARTHRITIS
     Route: 041
     Dates: start: 20101221
  2. BACTRIM [Concomitant]
     Indication: PROPHYLAXIS
  3. METHOTREXATE [Suspect]
     Dosage: RESTARTED FROM 15SEP
  4. PREDNISOLONE [Suspect]
     Indication: RHEUMATOID VASCULITIS
     Dosage: ALSO 15MG DOSE INCREASED TO 40MG/D ON 14JAN11 DOSE REDUCED TO 30MG/D ON 21JAN11
  5. KENALOG [Concomitant]
     Indication: STOMATITIS
  6. TACROLIMUS [Concomitant]
  7. IMURAN [Concomitant]
  8. ONEALFA [Concomitant]

REACTIONS (4)
  - INTERSTITIAL LUNG DISEASE [None]
  - SPINAL COMPRESSION FRACTURE [None]
  - STAPHYLOCOCCAL BACTERAEMIA [None]
  - ACUTE RESPIRATORY DISTRESS SYNDROME [None]
